FAERS Safety Report 25168513 (Version 1)
Quarter: 2025Q2

REPORT INFORMATION
  Report Type: Spontaneous
  Country: US (occurrence: US)
  Receive Date: 20250407
  Receipt Date: 20250407
  Transmission Date: 20250717
  Serious: No
  Sender: FERRING
  Company Number: US-FERRINGPH-2025FE00936

PATIENT
  Age: 72 Year
  Sex: Male

DRUGS (1)
  1. ADSTILADRIN [Suspect]
     Active Substance: NADOFARAGENE FIRADENOVEC-VNCG
     Indication: Bladder cancer
     Route: 043
     Dates: start: 202409, end: 20241209

REACTIONS (4)
  - Tachycardia [Unknown]
  - Disorientation [Unknown]
  - Chills [Recovered/Resolved]
  - Pyrexia [Recovered/Resolved]

NARRATIVE: CASE EVENT DATE: 20241209
